FAERS Safety Report 8873621 (Version 2)
Quarter: 2013Q3

REPORT INFORMATION
  Report Type: Spontaneous
  Country: GB (occurrence: GB)
  Receive Date: 20121030
  Receipt Date: 20130926
  Transmission Date: 20140515
  Serious: Yes (Other)
  Sender: FDA-Public Use
  Company Number: PHHY2012GB093687

PATIENT
  Age: 89 Year
  Sex: Male

DRUGS (8)
  1. OMEPRAZOLE [Suspect]
     Indication: DUODENAL ULCER HAEMORRHAGE
     Dosage: 40 MG, UNK
     Route: 048
     Dates: start: 20060425, end: 20120618
  2. DOXYCYCLINE [Concomitant]
  3. BUSCOPAN [Concomitant]
  4. RAMIPRIL [Concomitant]
  5. QUININE [Concomitant]
  6. CO-CODAMOL [Concomitant]
  7. FERROUS SULPHATE [Concomitant]
  8. FINASTERIDE [Concomitant]

REACTIONS (4)
  - Convulsion [Recovered/Resolved]
  - Hypocalcaemia [Recovered/Resolved]
  - Hypomagnesaemia [Recovered/Resolved]
  - Tetany [Recovered/Resolved]
